FAERS Safety Report 19321962 (Version 10)
Quarter: 2021Q4

REPORT INFORMATION
  Report Type: Spontaneous
  Country: US (occurrence: US)
  Receive Date: 20210528
  Receipt Date: 20211223
  Transmission Date: 20220303
  Serious: Yes (Other)
  Sender: FDA-Public Use
  Company Number: US-SA-SAC20210525000945

PATIENT
  Age: 20 Year
  Sex: Male

DRUGS (4)
  1. ALPROLIX [Suspect]
     Active Substance: EFTRENONACOG ALFA
     Dosage: 5000 IU
     Route: 042
  2. ALPROLIX [Suspect]
     Active Substance: EFTRENONACOG ALFA
     Dosage: 5000 IU
     Route: 042
  3. ALPROLIX [Suspect]
     Active Substance: EFTRENONACOG ALFA
     Dosage: UNK
  4. ALPROLIX [Suspect]
     Active Substance: EFTRENONACOG ALFA
     Dosage: UNK

REACTIONS (10)
  - Haemarthrosis [Unknown]
  - Haemorrhage [Unknown]
  - Ecchymosis [Recovered/Resolved]
  - Traumatic haematoma [Recovered/Resolved]
  - Nodule [Unknown]
  - Poor venous access [Unknown]
  - Asthenia [Unknown]
  - Arthralgia [Unknown]
  - Contusion [Unknown]
  - Injury [Unknown]

NARRATIVE: CASE EVENT DATE: 20210603
